FAERS Safety Report 7719897-2 (Version None)
Quarter: 2011Q3

REPORT INFORMATION
  Report Type: 
  Country: None (occurrence: None)
  Receive Date: 20110831
  Receipt Date: 20110822
  Transmission Date: 20111222
  Serious: No
  Sender: FDA-Public Use
  Company Number: US-BIOGENIDEC-2011BI032421

PATIENT
  Sex: Male

DRUGS (1)
  1. TYSABRI [Suspect]
     Indication: MULTIPLE SCLEROSIS
     Route: 042
     Dates: start: 20090527

REACTIONS (6)
  - THINKING ABNORMAL [None]
  - INSOMNIA [None]
  - NASOPHARYNGITIS [None]
  - PARANOIA [None]
  - FEAR [None]
  - FATIGUE [None]
